FAERS Safety Report 10553039 (Version 2)
Quarter: 2014Q4

REPORT INFORMATION
  Report Type: Spontaneous
  Country: SE (occurrence: SE)
  Receive Date: 20141029
  Receipt Date: 20141223
  Transmission Date: 20150529
  Serious: Yes (Hospitalization)
  Sender: FDA-Public Use
  Company Number: SE-TEVA-517004ISR

PATIENT
  Age: 57 Year
  Sex: Female

DRUGS (12)
  1. BETNOVAT [Concomitant]
     Active Substance: BETAMETHASONE
     Dosage: SALVA
  2. SIMVASTATIN. [Concomitant]
     Active Substance: SIMVASTATIN
  3. ATARAX [Concomitant]
     Active Substance: HYDROXYZINE\HYDROXYZINE HYDROCHLORIDE
  4. PAROXETINE [Suspect]
     Active Substance: PAROXETINE\PAROXETINE HYDROCHLORIDE
     Dosage: 80 MILLIGRAM DAILY;
     Route: 048
     Dates: start: 20130710, end: 20130710
  5. OXASCAND [Suspect]
     Active Substance: OXAZEPAM
     Dosage: 80 MILLIGRAM DAILY;
     Route: 048
     Dates: start: 20130710, end: 20130710
  6. TROMBYL [Concomitant]
     Active Substance: ASPIRIN
  7. BEHEPAN [Concomitant]
     Active Substance: HYDROXOCOBALAMIN
  8. CANODERM [Concomitant]
  9. ZOLPIDEM [Concomitant]
     Active Substance: ZOLPIDEM\ZOLPIDEM TARTRATE
  10. DAIVOBET [Concomitant]
     Active Substance: BETAMETHASONE DIPROPIONATE\CALCIPOTRIENE
  11. VENTILASTIN NOVOLIZER [Concomitant]
  12. PANODIL [Concomitant]
     Active Substance: ACETAMINOPHEN

REACTIONS (2)
  - Suicide attempt [Recovered/Resolved]
  - Toxicity to various agents [Recovered/Resolved]

NARRATIVE: CASE EVENT DATE: 20130710
